FAERS Safety Report 9087877 (Version 1)
Quarter: 2013Q1

REPORT INFORMATION
  Report Type: Spontaneous
  Country: US (occurrence: US)
  Receive Date: 20130131
  Receipt Date: 20130131
  Transmission Date: 20140127
  Serious: Yes (Other)
  Sender: FDA-Public Use
  Company Number: US-PFIZER INC-2013034130

PATIENT
  Age: 31 Year
  Sex: Male
  Weight: 109 kg

DRUGS (3)
  1. LYRICA [Suspect]
     Indication: NEURALGIA
     Dosage: 50 MG, 2X/DAY
     Dates: start: 201211
  2. LYRICA [Suspect]
     Indication: FIBROMYALGIA
     Dosage: 75 MG, 2X/DAY
     Dates: end: 20130106
  3. SEROQUEL [Concomitant]
     Indication: BIPOLAR DISORDER
     Dosage: 150 MG, DAILY

REACTIONS (5)
  - Withdrawal syndrome [Recovering/Resolving]
  - Bedridden [Recovering/Resolving]
  - Pain [Recovering/Resolving]
  - Drug withdrawal syndrome [Recovering/Resolving]
  - Therapeutic response unexpected [Unknown]
